FAERS Safety Report 8360633-7 (Version None)
Quarter: 2012Q1

REPORT INFORMATION
  Report Type: 
  Country: None (occurrence: None)
  Receive Date: 20120323
  Receipt Date: 20110616
  Transmission Date: 20120608
  Serious: Yes (Other)
  Sender: FDA-Public Use
  Company Number: 163-21880-11020499

PATIENT
  Age: 60 Year
  Sex: Female

DRUGS (3)
  1. REVLIMID [Suspect]
     Indication: MULTIPLE MYELOMA
     Dosage: 25 MG, DAILY FOR 21 DAYS, PO
     Route: 048
     Dates: start: 20100909
  2. REVLIMID [Suspect]
  3. ATROPINE (ATOPRINE) [Concomitant]

REACTIONS (10)
  - DIARRHOEA [None]
  - HYPOKALAEMIA [None]
  - FUNGAL INFECTION [None]
  - BURNING SENSATION [None]
  - DEPRESSION [None]
  - ARTHRITIS [None]
  - FATIGUE [None]
  - RASH [None]
  - PARAESTHESIA [None]
  - DERMATITIS INFECTED [None]
